FAERS Safety Report 9119431 (Version 1)
Quarter: 2013Q1

REPORT INFORMATION
  Report Type: Spontaneous
  Country: US (occurrence: None)
  Receive Date: 20130222
  Receipt Date: 20130222
  Transmission Date: 20140127
  Serious: Yes (Other)
  Sender: FDA-Public Use
  Company Number: None

PATIENT
  Age: 83 Year
  Sex: Male
  Weight: 58.97 kg

DRUGS (2)
  1. VALSARTAN AND HYDROCHLOROTHIAZIDE [Suspect]
     Indication: HYPERTENSION
     Dosage: QTY 90  1 PER DAY?DEC 8 TO DEC 10
  2. VALSARTAN AND HYDROCHLOROTHIAZIDE [Suspect]
     Dosage: QTY 90  1 PER DAY?DEC 8 TO DEC 10

REACTIONS (1)
  - Insomnia [None]
